FAERS Safety Report 23831082 (Version 1)
Quarter: 2024Q2

REPORT INFORMATION
  Report Type: Spontaneous
  Country: BR (occurrence: BR)
  Receive Date: 20240508
  Receipt Date: 20240508
  Transmission Date: 20240715
  Serious: Yes (Other)
  Sender: FDA-Public Use
  Company Number: BR-SUN PHARMACEUTICAL INDUSTRIES LTD-2024R1-444936

PATIENT
  Age: 65 Year
  Sex: Male

DRUGS (3)
  1. CHLORPROMAZINE [Suspect]
     Active Substance: CHLORPROMAZINE
     Indication: Bipolar I disorder
     Dosage: 300 MILLIGRAM, DAILY
     Route: 048
  2. CARBAMAZEPINE [Concomitant]
     Active Substance: CARBAMAZEPINE
     Indication: Bipolar I disorder
     Dosage: 400 MILLIGRAM, DAILY
     Route: 065
  3. DIAZEPAM [Concomitant]
     Active Substance: DIAZEPAM
     Indication: Bipolar I disorder
     Dosage: 10 MILLIGRAM, QD
     Route: 065

REACTIONS (2)
  - Corneal deposits [Recovering/Resolving]
  - Cataract [Unknown]
